FAERS Safety Report 23559621 (Version 1)
Quarter: 2024Q1

REPORT INFORMATION
  Report Type: Spontaneous
  Country: IN (occurrence: IN)
  Receive Date: 20240223
  Receipt Date: 20240223
  Transmission Date: 20240410
  Serious: Yes (Death)
  Sender: FDA-Public Use
  Company Number: IN-PFIZER INC-2021882360

PATIENT
  Age: 67 Year
  Sex: Male

DRUGS (7)
  1. CRIZOTINIB [Suspect]
     Active Substance: CRIZOTINIB
     Indication: Lung cancer metastatic
     Dosage: 250 MG, 2X/DAY
     Route: 048
     Dates: start: 20200729
  2. ZOLEDRONIC ACID [Concomitant]
     Active Substance: ZOLEDRONIC ACID
     Dosage: 4 MG, AFTER 15 MIN FOLLOWED BY FRESH  MILK NOS
     Route: 042
  3. SODIUM CHLORIDE [Concomitant]
     Active Substance: SODIUM CHLORIDE
     Dosage: 100 ML, AFTER 15 MIN FOLLOWED BY FRESH  MILK NOS
     Route: 042
  4. CALCIUM\VITAMIN D [Concomitant]
     Active Substance: CALCIUM\VITAMIN D
     Dosage: 1X1
  5. THYROX [Concomitant]
     Dosage: OD
  6. CALCIUM [Concomitant]
     Active Substance: CALCIUM
     Dosage: OD
  7. CERITINIB [Concomitant]
     Active Substance: CERITINIB
     Dosage: UNK

REACTIONS (4)
  - Death [Fatal]
  - Dyspnoea [Unknown]
  - Blood albumin decreased [Unknown]
  - Oedema [Unknown]

NARRATIVE: CASE EVENT DATE: 20200803
